FAERS Safety Report 17562446 (Version 1)
Quarter: 2020Q1

REPORT INFORMATION
  Report Type: Spontaneous
  Country: ES (occurrence: ES)
  Receive Date: 20200319
  Receipt Date: 20200319
  Transmission Date: 20200409
  Serious: Yes (Other)
  Sender: FDA-Public Use
  Company Number: ES-PFIZER INC-2020116277

PATIENT
  Age: 60 Year
  Sex: Female

DRUGS (4)
  1. EUTIROX [Suspect]
     Active Substance: LEVOTHYROXINE SODIUM
     Dosage: UNK UNK, 1X/DAY (1/24)
     Dates: start: 2007
  2. DOLQUINE [Suspect]
     Active Substance: HYDROXYCHLOROQUINE SULFATE
     Indication: SJOGREN^S SYNDROME
     Dosage: UNK
     Dates: start: 201509
  3. HYDROCHLOROTHIAZIDE/LOSARTAN POTASSIUM [Suspect]
     Active Substance: HYDROCHLOROTHIAZIDE\LOSARTAN POTASSIUM
     Dosage: 50 MG/12.5 MG
     Dates: start: 2012
  4. DOBUPAL [Suspect]
     Active Substance: VENLAFAXINE HYDROCHLORIDE
     Dosage: UNK UNK, 1X/DAY (1/24)
     Dates: start: 2007

REACTIONS (1)
  - Visual acuity reduced [Not Recovered/Not Resolved]

NARRATIVE: CASE EVENT DATE: 201904
